FAERS Safety Report 15034581 (Version 1)
Quarter: 2018Q2

REPORT INFORMATION
  Report Type: Spontaneous
  Country: SE (occurrence: SE)
  Receive Date: 20180620
  Receipt Date: 20180620
  Transmission Date: 20180711
  Serious: Yes (Hospitalization)
  Sender: FDA-Public Use
  Company Number: SE-TEVA-2018-SE-909922

PATIENT
  Age: 76 Year
  Sex: Female

DRUGS (3)
  1. LEVAXIN [Concomitant]
     Active Substance: LEVOTHYROXINE SODIUM
     Route: 065
  2. PACLITAXEL. [Concomitant]
     Active Substance: PACLITAXEL
     Dosage: 6TH TREATMENT, GIVEN WEEKLY
     Dates: start: 201802
  3. ZOLEDRONIC ACID (ANHYDROUS) [Suspect]
     Active Substance: ZOLEDRONIC ACID ANHYDROUS
     Route: 042
     Dates: start: 20180322, end: 20180322

REACTIONS (5)
  - Chills [Recovered/Resolved]
  - Myalgia [Recovered/Resolved]
  - Diarrhoea [Recovered/Resolved]
  - Inflammation [Recovered/Resolved]
  - Pyrexia [Recovered/Resolved]

NARRATIVE: CASE EVENT DATE: 201803
